FAERS Safety Report 6689163-5 (Version None)
Quarter: 2010Q2

REPORT INFORMATION
  Report Type: 
  Country: None (occurrence: None)
  Receive Date: 20100420
  Receipt Date: 20100208
  Transmission Date: 20101027
  Serious: No
  Sender: FDA-Public Use
  Company Number: US-ALLERGAN-0914870US

PATIENT
  Age: 57 Year
  Sex: Female

DRUGS (6)
  1. LATISSE [Suspect]
     Indication: GROWTH OF EYELASHES
     Dosage: 1 GTT, QPM
     Dates: end: 20100101
  2. LISINOPRIL [Concomitant]
     Dosage: UNK
  3. PROTONICS [Concomitant]
     Dosage: UNK
  4. VOLTAREN [Concomitant]
     Dosage: UNK
  5. HORMONES AND RELATED AGENTS [Concomitant]
     Indication: HORMONE REPLACEMENT THERAPY
     Dosage: UNK
  6. BOTOX COSMETIC [Concomitant]
     Dosage: UNK

REACTIONS (1)
  - MADAROSIS [None]
